FAERS Safety Report 4683449-1 (Version None)
Quarter: 2005Q2

REPORT INFORMATION
  Report Type: 
  Country: None (occurrence: None)
  Receive Date: 20050607
  Receipt Date: 20050526
  Transmission Date: 20051028
  Serious: Yes (Hospitalization, Other)
  Sender: FDA-Public Use
  Company Number: US-JNJFOC-20050503430

PATIENT
  Sex: Female

DRUGS (25)
  1. INFLIXIMAB [Suspect]
     Indication: RHEUMATOID ARTHRITIS
     Route: 042
  2. AMBIEN [Concomitant]
  3. DARVOCET-N 100 [Concomitant]
  4. DARVOCET-N 100 [Concomitant]
  5. FLEXERIL [Concomitant]
  6. FOLIC ACID [Concomitant]
  7. METHOTREXATE [Concomitant]
  8. MULTI-VITAMIN [Concomitant]
  9. MULTI-VITAMIN [Concomitant]
  10. MULTI-VITAMIN [Concomitant]
  11. MULTI-VITAMIN [Concomitant]
  12. MULTI-VITAMIN [Concomitant]
  13. MULTI-VITAMIN [Concomitant]
  14. MULTI-VITAMIN [Concomitant]
  15. MULTI-VITAMIN [Concomitant]
  16. PLAQUENIL [Concomitant]
  17. PROCARDIA [Concomitant]
  18. TRENTAL [Concomitant]
  19. ZYRTEC [Concomitant]
  20. ZOCOR [Concomitant]
  21. ACTONEL [Concomitant]
  22. OS-CAL + D [Concomitant]
  23. OS-CAL + D [Concomitant]
  24. TOPROL-XL [Concomitant]
  25. CELEBREX [Concomitant]

REACTIONS (3)
  - CHOLECYSTITIS CHRONIC [None]
  - CHOLELITHIASIS [None]
  - GALLBLADDER CANCER [None]
